FAERS Safety Report 16895053 (Version 2)
Quarter: 2019Q4

REPORT INFORMATION
  Report Type: Spontaneous
  Country: US (occurrence: US)
  Receive Date: 20191008
  Receipt Date: 20191014
  Transmission Date: 20200122
  Serious: Yes (Other)
  Sender: FDA-Public Use
  Company Number: US-PFIZER INC-2019423279

PATIENT
  Age: 73 Year
  Sex: Female

DRUGS (12)
  1. PREDNISONE. [Concomitant]
     Active Substance: PREDNISONE
     Indication: SARCOIDOSIS
     Dosage: WITH A SLOW TAPER
  2. DACARBAZINE. [Suspect]
     Active Substance: DACARBAZINE
     Indication: HODGKIN^S DISEASE
     Dosage: UNK UNK, CYCLIC
  3. DOXORUBICIN HCL [Suspect]
     Active Substance: DOXORUBICIN HYDROCHLORIDE
     Indication: HODGKIN^S DISEASE
     Dosage: UNK UNK, CYCLIC
  4. PREDNISONE. [Concomitant]
     Active Substance: PREDNISONE
     Dosage: REPEATED ATTEMPTS TO TAPER STEROIDS REMAINED UNSUCCESSFUL. TAPER WAS INITIATED
  5. VINBLASTINE [Suspect]
     Active Substance: VINBLASTINE
     Indication: HODGKIN^S DISEASE
     Dosage: UNK UNK, CYCLIC
  6. INFLIXIMAB [Concomitant]
     Active Substance: INFLIXIMAB
     Indication: SARCOIDOSIS
     Dosage: INCREASED TO 5MG/KG EVERY 8 WEEKS.
  7. ZOLEDRONIC ACID [Concomitant]
     Active Substance: ZOLEDRONIC ACID
     Dosage: UNK
  8. INFLIXIMAB [Concomitant]
     Active Substance: INFLIXIMAB
     Dosage: WITH REPEAT DOSES EVERY 8 WEEKS THEREAFTER
  9. PREDNISONE. [Concomitant]
     Active Substance: PREDNISONE
     Dosage: 60 MG, DAILY
  10. BLEOMYCIN SULFATE [Suspect]
     Active Substance: BLEOMYCIN SULFATE
     Indication: HODGKIN^S DISEASE
     Dosage: UNK UNK, CYCLIC
  11. INFLIXIMAB [Concomitant]
     Active Substance: INFLIXIMAB
     Dosage: LOADING DOSES OF INFLIXIMAB, 3MG/KG, AT WEEKS 0, 2, AND 6
  12. PREDNISONE. [Concomitant]
     Active Substance: PREDNISONE
     Dosage: 60 MG, DAILY

REACTIONS (1)
  - Neutropenia [Unknown]
